FAERS Safety Report 23272197 (Version 1)
Quarter: 2023Q4

REPORT INFORMATION
  Report Type: Spontaneous
  Country: US (occurrence: US)
  Receive Date: 20231207
  Receipt Date: 20231207
  Transmission Date: 20240109
  Serious: No
  Sender: FDA-Public Use
  Company Number: US-ACELLA PHARMACEUTICALS, LLC-2023ALO00050

PATIENT
  Sex: Female
  Weight: 68.027 kg

DRUGS (3)
  1. DHIVY [Suspect]
     Active Substance: CARBIDOPA\LEVODOPA
     Indication: Progressive supranuclear palsy
     Dosage: 3/4 TABLET, DAILY AS NEEDED FOR RESCUE
     Route: 048
     Dates: start: 20230926
  2. DHIVY [Suspect]
     Active Substance: CARBIDOPA\LEVODOPA
     Indication: Unevaluable event
  3. UNSPECIFIED INGREDIENT [Concomitant]
     Active Substance: UNSPECIFIED INGREDIENT

REACTIONS (1)
  - Speech disorder [Not Recovered/Not Resolved]

NARRATIVE: CASE EVENT DATE: 20230101
